FAERS Safety Report 5545283-X (Version None)
Quarter: 2007Q4

REPORT INFORMATION
  Report Type: 
  Country: None (occurrence: None)
  Receive Date: 20071211
  Receipt Date: 20071203
  Transmission Date: 20080405
  Serious: Yes (Other)
  Sender: FDA-Public Use
  Company Number: PHEH2007US15515

PATIENT
  Sex: Male

DRUGS (2)
  1. NEORAL [Suspect]
  2. MYFORTIC [Suspect]

REACTIONS (1)
  - CARDIOMEGALY [None]
